FAERS Safety Report 6324471-9 (Version None)
Quarter: 2009Q3

REPORT INFORMATION
  Report Type: 
  Country: None (occurrence: None)
  Receive Date: 20090824
  Receipt Date: 20090813
  Transmission Date: 20100115
  Serious: Yes (Hospitalization, Other)
  Sender: FDA-Public Use
  Company Number: GR-JNJFOC-20090602238

PATIENT
  Age: 54 Year
  Sex: Male
  Weight: 85 kg

DRUGS (9)
  1. REMICADE [Suspect]
     Indication: ANKYLOSING SPONDYLITIS
     Route: 042
  2. ENALAPRIL MALEATE [Concomitant]
     Indication: CORONARY ARTERY DISEASE
  3. ENALAPRIL MALEATE [Concomitant]
     Indication: HYPERTENSION
  4. LOBIVON [Concomitant]
     Indication: CORONARY ARTERY DISEASE
  5. LOBIVON [Concomitant]
     Indication: HYPERTENSION
  6. T4 [Concomitant]
     Indication: HYPOTHYROIDISM
  7. ASPIRIN [Concomitant]
     Indication: CORONARY ARTERY DISEASE
  8. PRAVASTATIN [Concomitant]
     Indication: HYPERLIPIDAEMIA
  9. PRAVASTATIN [Concomitant]
     Indication: CORONARY ARTERY DISEASE

REACTIONS (3)
  - ACUTE INTERSTITIAL PNEUMONITIS [None]
  - HYPOXIA [None]
  - LUPUS-LIKE SYNDROME [None]
